FAERS Safety Report 16356955 (Version 5)
Quarter: 2024Q1

REPORT INFORMATION
  Report Type: Spontaneous
  Country: JP (occurrence: JP)
  Receive Date: 20190527
  Receipt Date: 20240215
  Transmission Date: 20240410
  Serious: Yes (Death, Hospitalization, Other)
  Sender: FDA-Public Use
  Company Number: JP-BRISTOL-MYERS SQUIBB COMPANY-BMS-2018-120065

PATIENT
  Age: 72 Year
  Sex: Male
  Weight: 71 kg

DRUGS (2)
  1. IPILIMUMAB [Suspect]
     Active Substance: IPILIMUMAB
     Indication: Renal cell carcinoma
     Dosage: 85 MILLIGRAM
     Route: 041
     Dates: start: 20181030, end: 20181212
  2. NIVOLUMAB [Suspect]
     Active Substance: NIVOLUMAB
     Indication: Renal cell carcinoma
     Route: 041
     Dates: start: 20181030, end: 20181212

REACTIONS (15)
  - Gastrointestinal perforation [Fatal]
  - Immune-mediated enterocolitis [Fatal]
  - Hypopituitarism [Not Recovered/Not Resolved]
  - Diarrhoea [Recovered/Resolved]
  - Duodenal perforation [Fatal]
  - Cytokine release syndrome [Unknown]
  - Depressed level of consciousness [Not Recovered/Not Resolved]
  - Renal impairment [Not Recovered/Not Resolved]
  - Vomiting [Unknown]
  - Pyrexia [Not Recovered/Not Resolved]
  - Gastrointestinal wall thickening [Unknown]
  - Rash [Unknown]
  - Decreased appetite [Unknown]
  - Blood pressure decreased [Not Recovered/Not Resolved]
  - Intestinal perforation [Fatal]

NARRATIVE: CASE EVENT DATE: 20181212
